FAERS Safety Report 19743076 (Version 2)
Quarter: 2021Q3

REPORT INFORMATION
  Report Type: Report from Study
  Country: US (occurrence: US)
  Receive Date: 20210824
  Receipt Date: 20210924
  Transmission Date: 20211014
  Serious: Yes (Hospitalization)
  Sender: FDA-Public Use
  Company Number: US-SEATTLE GENETICS-2021SGN04347

PATIENT
  Age: 76 Year
  Sex: Male
  Weight: 117.6 kg

DRUGS (3)
  1. TUCATINIB [Suspect]
     Active Substance: TUCATINIB
     Indication: NON-SMALL CELL LUNG CANCER
     Dosage: 300 MG, BID, DAYS 1 TO 21 OF EACH 21?DAY CYCLE
     Route: 048
     Dates: start: 20210611, end: 20210817
  2. TRASTUZUMAB. [Suspect]
     Active Substance: TRASTUZUMAB
     Indication: NON-SMALL CELL LUNG CANCER
     Dosage: 900 MG, DAY 1 OF CYCLE 1
     Route: 042
     Dates: start: 20210611
  3. TRASTUZUMAB. [Suspect]
     Active Substance: TRASTUZUMAB
     Dosage: 6 MG/KG, Q3WEEKS
     Route: 042
     Dates: end: 20210813

REACTIONS (1)
  - Syncope [Recovered/Resolved]

NARRATIVE: CASE EVENT DATE: 20210817
